FAERS Safety Report 9801161 (Version 3)
Quarter: 2014Q1

REPORT INFORMATION
  Report Type: Spontaneous
  Country: IT (occurrence: IT)
  Receive Date: 20140107
  Receipt Date: 20140121
  Transmission Date: 20141002
  Serious: Yes (Death, Hospitalization)
  Sender: FDA-Public Use
  Company Number: IT-PFIZER INC-2013374407

PATIENT
  Age: 66 Year
  Sex: Male

DRUGS (4)
  1. CISPLATINO TEVA [Suspect]
     Indication: LUNG NEOPLASM MALIGNANT
     Dosage: 124.8 MG PER DAY, POWDER FOR SOLUTION FOR INFUSION (CYCLICAL)
     Route: 042
     Dates: start: 20130624, end: 20130805
  2. CISPLATINO TEVA [Suspect]
     Dosage: UNK, POWDER FOR SOLUTION FOR INFUSION (CYCLICAL)
     Route: 042
     Dates: start: 20130405, end: 20130527
  3. GEMZAR [Suspect]
     Indication: LUNG NEOPLASM MALIGNANT
     Dosage: 1872 MG PER DAY, POWDER FOR SOLUTION FOR INFUSION (CYCLICAL)
     Route: 042
     Dates: start: 20130624, end: 20130805
  4. GEMZAR [Suspect]
     Dosage: UNK, POWDER FOR SOLUTION FOR INFUSION (CYCLICAL)
     Route: 042
     Dates: start: 20130405, end: 20130527

REACTIONS (4)
  - Respiratory failure [Fatal]
  - Interstitial lung disease [Fatal]
  - Cachexia [Not Recovered/Not Resolved]
  - Decreased appetite [Not Recovered/Not Resolved]
